FAERS Safety Report 23122820 (Version 1)
Quarter: 2023Q4

REPORT INFORMATION
  Report Type: Spontaneous
  Country: US (occurrence: US)
  Receive Date: 20231030
  Receipt Date: 20231030
  Transmission Date: 20240110
  Serious: No
  Sender: FDA-Public Use
  Company Number: US-APOTEX-2022AP016500

PATIENT
  Age: 48 Year
  Sex: Male

DRUGS (1)
  1. SIROLIMUS [Suspect]
     Active Substance: SIROLIMUS
     Indication: Kaposi^s sarcoma
     Dosage: UNK
     Route: 065

REACTIONS (2)
  - Urine protein/creatinine ratio increased [Unknown]
  - Blood creatinine increased [Unknown]
